FAERS Safety Report 9585498 (Version 2)
Quarter: 2014Q1

REPORT INFORMATION
  Report Type: Spontaneous
  Country: US (occurrence: US)
  Receive Date: 20131003
  Receipt Date: 20140120
  Transmission Date: 20141002
  Serious: No
  Sender: FDA-Public Use
  Company Number: US-009507513-1310USA000026

PATIENT
  Sex: Female
  Weight: 62.13 kg

DRUGS (8)
  1. PEGINTRON [Suspect]
     Dosage: 0.5 ML, QW (120MCG/0.5ML); REDIPEN (4SYR/PK)
     Route: 058
  2. VICTRELIS [Suspect]
     Route: 048
  3. RIBAPAK [Suspect]
     Dosage: 800/DAY
  4. METOPROLOL [Concomitant]
     Dosage: 25 MG ER
  5. METFORMIN [Concomitant]
     Dosage: UNK
  6. SIMVASTATIN TABLETS, USP [Concomitant]
     Dosage: FORMULATION: TABLET
  7. LORATADINE [Concomitant]
  8. ASPIRIN [Concomitant]

REACTIONS (5)
  - Arthralgia [Unknown]
  - Nausea [Unknown]
  - Diarrhoea [Unknown]
  - Tongue injury [Unknown]
  - Glossodynia [Unknown]
